FAERS Safety Report 21083013 (Version 8)
Quarter: 2022Q4

REPORT INFORMATION
  Report Type: Report from Study
  Country: US (occurrence: US)
  Receive Date: 20220714
  Receipt Date: 20221212
  Transmission Date: 20230113
  Serious: No
  Sender: FDA-Public Use
  Company Number: US-NOVARTISTESTPH-NVSC2022US159490

PATIENT
  Sex: Male

DRUGS (4)
  1. ENTRESTO [Suspect]
     Active Substance: SACUBITRIL\VALSARTAN
     Indication: Product used for unknown indication
     Dosage: 1 DOSAGE FORM, BID
     Route: 065
     Dates: start: 202205
  2. ENTRESTO [Suspect]
     Active Substance: SACUBITRIL\VALSARTAN
     Dosage: 1 DOSAGE FORM, BID
     Route: 065
  3. WARFARIN [Suspect]
     Active Substance: WARFARIN
     Indication: Product used for unknown indication
     Dosage: 6 MG (MON AND THURS)
     Route: 065
     Dates: start: 2018
  4. WARFARIN [Suspect]
     Active Substance: WARFARIN
     Dosage: 4 MG (ALL OTHER DAYS)
     Route: 065
     Dates: start: 2018

REACTIONS (7)
  - Weight increased [Unknown]
  - Arthralgia [Recovering/Resolving]
  - Gait inability [Unknown]
  - Fall [Recovering/Resolving]
  - Stress [Recovering/Resolving]
  - Heart rate abnormal [Unknown]
  - Hypotension [Recovering/Resolving]

NARRATIVE: CASE EVENT DATE: 20220101
